FAERS Safety Report 9226089 (Version 2)
Quarter: 2013Q2

REPORT INFORMATION
  Report Type: Spontaneous
  Country: US (occurrence: US)
  Receive Date: 20130411
  Receipt Date: 20130423
  Transmission Date: 20140414
  Serious: Yes (Other)
  Sender: FDA-Public Use
  Company Number: US-PERRIGO-13US003685

PATIENT
  Age: 6 Year
  Sex: Male
  Weight: 21.77 kg

DRUGS (2)
  1. GUAIFENESIN DM CHRY LIQ 419 [Suspect]
     Indication: COUGH
     Dosage: 7.5 ML, SINGLE
     Route: 048
     Dates: start: 20130403, end: 20130403
  2. GUAIFENESIN DM CHRY LIQ 419 [Suspect]
     Dosage: 10 ML, SINGLE
     Route: 048
     Dates: start: 20130404, end: 20130404

REACTIONS (3)
  - Hallucination, auditory [Recovered/Resolved]
  - Vomiting [Recovered/Resolved]
  - Insomnia [Recovered/Resolved]
